FAERS Safety Report 22944844 (Version 2)
Quarter: 2023Q4

REPORT INFORMATION
  Report Type: Report from Study
  Country: US (occurrence: US)
  Receive Date: 20230914
  Receipt Date: 20231219
  Transmission Date: 20240109
  Serious: Yes (Other)
  Sender: FDA-Public Use
  Company Number: US-UCBSA-2023027730

PATIENT
  Sex: Male

DRUGS (3)
  1. CERTOLIZUMAB PEGOL [Suspect]
     Active Substance: CERTOLIZUMAB PEGOL
     Indication: Rheumatoid arthritis
     Dosage: 400 MILLIGRAM, EV 2 WEEKS(QOW)
     Route: 058
     Dates: start: 20230419, end: 2023
  2. CERTOLIZUMAB PEGOL [Suspect]
     Active Substance: CERTOLIZUMAB PEGOL
     Dosage: 400 MILLIGRAM, EV 4 WEEKS
     Route: 058
     Dates: start: 2023, end: 2023
  3. DUPIXENT [Concomitant]
     Active Substance: DUPILUMAB
     Indication: Product used for unknown indication
     Dosage: UNK

REACTIONS (9)
  - Rheumatoid arthritis [Unknown]
  - Pain in extremity [Not Recovered/Not Resolved]
  - Headache [Not Recovered/Not Resolved]
  - Illness [Not Recovered/Not Resolved]
  - Rash [Not Recovered/Not Resolved]
  - Pruritus [Not Recovered/Not Resolved]
  - Bone pain [Unknown]
  - Discomfort [Unknown]
  - Therapeutic product effect decreased [Unknown]

NARRATIVE: CASE EVENT DATE: 20230101
